FAERS Safety Report 9837330 (Version 2)
Quarter: 2014Q1

REPORT INFORMATION
  Report Type: Spontaneous
  Country: US (occurrence: US)
  Receive Date: 20140123
  Receipt Date: 20140217
  Transmission Date: 20141002
  Serious: No
  Sender: FDA-Public Use
  Company Number: US-PFIZER INC-2014017656

PATIENT
  Age: 49 Year
  Sex: Female

DRUGS (2)
  1. FLAGYL [Suspect]
     Dosage: UNK
  2. CIPRO [Suspect]
     Dosage: UNK

REACTIONS (4)
  - Drug hypersensitivity [Unknown]
  - Pruritus [Unknown]
  - Hand dermatitis [Unknown]
  - Oedema peripheral [Unknown]
